FAERS Safety Report 5082543-3 (Version None)
Quarter: 2006Q3

REPORT INFORMATION
  Report Type: 
  Country: None (occurrence: None)
  Receive Date: 20060817
  Receipt Date: 20060726
  Transmission Date: 20061208
  Serious: Yes (Hospitalization)
  Sender: FDA-Public Use
  Company Number: DE-ROCHE-457019

PATIENT
  Age: 38 Year
  Sex: Female
  Weight: 70 kg

DRUGS (5)
  1. PEGASYS [Suspect]
     Route: 058
     Dates: start: 20060505
  2. COPEGUS [Suspect]
     Route: 048
     Dates: start: 20060505
  3. METOHEXAL RETARD [Concomitant]
     Indication: HYPERTENSION
     Route: 048
  4. HCT BETA [Concomitant]
     Indication: HYPERTENSION
     Route: 048
  5. L-THYROXIN [Concomitant]
     Indication: HYPOTHYROIDISM
     Route: 048

REACTIONS (1)
  - CEREBRAL INFARCTION [None]
